FAERS Safety Report 6302091-X (Version None)
Quarter: 2009Q3

REPORT INFORMATION
  Report Type: 
  Country: None (occurrence: None)
  Receive Date: 20090807
  Receipt Date: 20090731
  Transmission Date: 20100115
  Serious: Yes (Other)
  Sender: FDA-Public Use
  Company Number: DE-JNJCH-2009019876

PATIENT
  Sex: Female

DRUGS (1)
  1. REGAINE FRAUEN [Suspect]
     Indication: ALOPECIA
     Dosage: TEXT:UNSPECIFIED
     Route: 061

REACTIONS (5)
  - BLEPHARITIS [None]
  - DANDRUFF [None]
  - EYE SWELLING [None]
  - OCULAR HYPERAEMIA [None]
  - PRURITUS [None]
